FAERS Safety Report 13095987 (Version 2)
Quarter: 2017Q1

REPORT INFORMATION
  Report Type: Spontaneous
  Country: IT (occurrence: IT)
  Receive Date: 20170109
  Receipt Date: 20170117
  Transmission Date: 20170428
  Serious: Yes (Other)
  Sender: FDA-Public Use
  Company Number: IT-ACCORD-047207

PATIENT
  Age: 56 Year
  Sex: Female
  Weight: 68 kg

DRUGS (5)
  1. BEVACIZUMAB [Suspect]
     Active Substance: BEVACIZUMAB
     Indication: ADENOCARCINOMA OF COLON
     Dosage: THE PATIENT UNDERWENT FOLFIRI/BEVACIZUMAB CYCLE 1, 2 AND 5. ALOS RECEIVED 295 MG
     Route: 042
     Dates: start: 20160805
  2. EUTIROX [Concomitant]
     Active Substance: LEVOTHYROXINE SODIUM
     Indication: PRODUCT USED FOR UNKNOWN INDICATION
  3. FLUOROURACIL. [Suspect]
     Active Substance: FLUOROURACIL
     Indication: ADENOCARCINOMA OF COLON
     Dosage: ALSO RECEIVED AT THE DOSE OF 4080 MG CYCLICAL I.V. ON SAME DATE, FOLFIRI/BEVACIZUMAB CYCLE 1,2, 5
     Route: 040
     Dates: start: 20160805
  4. IRINOTECAN [Suspect]
     Active Substance: IRINOTECAN
     Indication: ADENOCARCINOMA OF COLON
     Dosage: THE PATIENT UNDERWENT FOLFIRI/BEVACIZUMAB CYCLE 1,2 AND 5. ALSO RECEIVED 210 MG AND 206 MG
     Route: 042
     Dates: start: 20160805
  5. LEVOFOLINIC ACID [Concomitant]
     Active Substance: LEVOLEUCOVORIN
     Indication: PRODUCT USED FOR UNKNOWN INDICATION
     Route: 042
     Dates: start: 20160805, end: 20161013

REACTIONS (5)
  - Constipation [Recovering/Resolving]
  - Diarrhoea [Recovering/Resolving]
  - Pyrexia [Recovering/Resolving]
  - Anaemia [Recovering/Resolving]
  - Influenza [Not Recovered/Not Resolved]

NARRATIVE: CASE EVENT DATE: 20160807
